FAERS Safety Report 5325390-7 (Version None)
Quarter: 2007Q2

REPORT INFORMATION
  Report Type: 
  Country: None (occurrence: None)
  Receive Date: 20070509
  Receipt Date: 20070426
  Transmission Date: 20071010
  Serious: Yes (Other)
  Sender: FDA-Public Use
  Company Number: 07H-028-0312519-00

PATIENT
  Age: 29 Year
  Sex: Female
  Weight: 74.8435 kg

DRUGS (12)
  1. PENTOTHAL [Suspect]
     Indication: COMA
     Dosage: SEE IMAGE
  2. VANCOMYCIN [Suspect]
     Indication: PNEUMONIA
     Dosage: SEE IMAGE
  3. PHENYTOIN [Suspect]
     Indication: CONVULSION PROPHYLAXIS
     Dosage: 18 MG/KG, ONCE, INTRAVENOUS
     Route: 042
  4. PIPERACILLIN AND TAZOBACTAM [Suspect]
     Indication: PNEUMONIA
  5. 20% MANNITOL (MANNITOL) [Concomitant]
  6. 3% HYPERTONIC SALINE INFUSION (SODIUM CHLORIDE) [Concomitant]
  7. ROCURONIUM (ROCURONIUM) [Concomitant]
  8. PROPOFOL [Concomitant]
  9. NOREPINEPHRINE BITARTRATE [Concomitant]
  10. INSULIN (INSULIN) [Concomitant]
  11. CIPROFLOXACIN [Concomitant]
  12. GRANULOCYTE COLONY-STIMULATING FACTOR (GRANULOCYTE COLONY STIMULATING [Concomitant]

REACTIONS (1)
  - NEUTROPENIA [None]
